FAERS Safety Report 13662640 (Version 1)
Quarter: 2017Q2

REPORT INFORMATION
  Report Type: Spontaneous
  Country: US (occurrence: US)
  Receive Date: 20170616
  Receipt Date: 20170616
  Transmission Date: 20170830
  Serious: Yes (Hospitalization)
  Sender: FDA-Public Use
  Company Number: None

PATIENT
  Age: 67 Year
  Sex: Male
  Weight: 145.9 kg

DRUGS (2)
  1. WARFARIN [Suspect]
     Active Substance: WARFARIN
     Indication: VASCULAR OPERATION
     Route: 048
     Dates: start: 20160714, end: 20160718
  2. RIVAROXABAN [Suspect]
     Active Substance: RIVAROXABAN
     Indication: VASCULAR OPERATION
     Route: 048
     Dates: start: 20160718

REACTIONS (3)
  - International normalised ratio abnormal [None]
  - Gastric haemorrhage [None]
  - Haematuria [None]

NARRATIVE: CASE EVENT DATE: 20160720
